FAERS Safety Report 9669489 (Version 3)
Quarter: 2014Q1

REPORT INFORMATION
  Report Type: Report from Study
  Country: FR (occurrence: FR)
  Receive Date: 20131105
  Receipt Date: 20140326
  Transmission Date: 20141002
  Serious: Yes (Other)
  Sender: FDA-Public Use
  Company Number: FR-VERTEX PHARMACEUTICALS INC-2013-010746

PATIENT
  Age: 18 Year
  Sex: Male
  Weight: 74 kg

DRUGS (15)
  1. VX-809 FDC [Suspect]
     Indication: CYSTIC FIBROSIS
     Dosage: 600 MG, QD
     Dates: start: 20131014
  2. VX-770 FDC [Suspect]
     Indication: CYSTIC FIBROSIS
     Dosage: 250 MG, QD AM
     Dates: start: 20131014
  3. VX-770 [Suspect]
     Indication: CYSTIC FIBROSIS
     Dosage: 250 MG, QD PM
     Dates: start: 20131014
  4. TOBI [Concomitant]
     Indication: PSEUDOMONAS INFECTION
     Dosage: 4 DF, BID 1MONTH/2
     Route: 048
     Dates: start: 20121122
  5. PULMOZYME [Concomitant]
     Indication: INCREASED BRONCHIAL SECRETION
     Dosage: 2.5 UNK, QD
     Dates: start: 2008
  6. UVEDOSE [Concomitant]
     Indication: HYPOVITAMINOSIS
     Dosage: 1 BLISTER/MONTH
     Dates: start: 20130104
  7. DERMORELLE [Concomitant]
     Indication: HYPOVITAMINOSIS
     Dosage: 1 CAP, QOD
     Dates: start: 20061222
  8. MOPRAL [Concomitant]
     Dosage: 60 MG, QD
     Dates: start: 20130301
  9. ZITHROMAX [Concomitant]
     Indication: INFLAMMATION
     Dosage: 500 MG, 3X/WEEK
     Dates: start: 201009
  10. SYMBICORT [Concomitant]
     Indication: ASTHMA
     Dosage: 1 PUFF, BID
     Route: 048
     Dates: start: 20110928
  11. SYMBICORT [Concomitant]
     Dosage: UNK
     Route: 055
  12. CREON 25000 [Concomitant]
     Indication: PANCREATIC INSUFFICIENCY
     Dosage: 12 CAPS, QD
     Dates: start: 20111230
  13. VENTOLINE [Concomitant]
     Indication: COUGH
     Dosage: 2 PUFFS, PRN
     Route: 048
     Dates: start: 20130705
  14. DELURSAN [Concomitant]
     Indication: HEPARIN-INDUCED THROMBOCYTOPENIA
     Dosage: 500 MG, TID
     Dates: start: 20070818
  15. SERETIDE [Concomitant]
     Indication: ASTHMA
     Dosage: UNK
     Route: 055

REACTIONS (1)
  - Dyspnoea [Recovered/Resolved]
